FAERS Safety Report 8135919-1 (Version None)
Quarter: 2012Q1

REPORT INFORMATION
  Report Type: 
  Country: None (occurrence: None)
  Receive Date: 20120210
  Receipt Date: 20120206
  Transmission Date: 20120608
  Serious: Yes (Hospitalization, Other)
  Sender: FDA-Public Use
  Company Number: 2010SP028485

PATIENT
  Age: 20 Year
  Sex: Female
  Weight: 105.0077 kg

DRUGS (2)
  1. NUVARING [Suspect]
     Indication: CONTRACEPTION
     Dosage: VAG
     Route: 067
     Dates: start: 20010101, end: 20080519
  2. IBUPROFEN (ADVIL) [Concomitant]

REACTIONS (10)
  - PYELONEPHRITIS [None]
  - EAR INFECTION [None]
  - WEIGHT INCREASED [None]
  - DEEP VEIN THROMBOSIS [None]
  - ABORTION INDUCED [None]
  - MATERNAL DRUGS AFFECTING FOETUS [None]
  - WITHDRAWAL BLEED [None]
  - PREGNANCY WITH CONTRACEPTIVE DEVICE [None]
  - ASTHMA [None]
  - THROMBOPHLEBITIS [None]
